FAERS Safety Report 5415592-3 (Version None)
Quarter: 2007Q3

REPORT INFORMATION
  Report Type: 
  Country: None (occurrence: None)
  Receive Date: 20070813
  Receipt Date: 20070803
  Transmission Date: 20080115
  Serious: Yes (Hospitalization)
  Sender: FDA-Public Use
  Company Number: S07-FRA-02773-01

PATIENT
  Age: 50 Year
  Sex: Female

DRUGS (6)
  1. AOTAL (ACAMPROSATE) [Suspect]
     Dosage: 6 QD PO
     Route: 048
  2. BISOPROLOL FUMARATE [Suspect]
     Dosage: 10 MG QD PO
     Route: 048
  3. MEPRONIZINE [Suspect]
     Dosage: 1 QD PO
     Route: 048
  4. ASPIRIN [Suspect]
     Dosage: 160 MG PO
     Route: 048
  5. AMLODIPINE BESYLATE [Suspect]
     Dosage: 10 MG QD PO
     Route: 048
  6. PRAVASTATIN [Suspect]
     Dosage: 20 MG QD PO
     Route: 048

REACTIONS (8)
  - BLOOD LACTIC ACID INCREASED [None]
  - CONTUSION [None]
  - DECREASED ACTIVITY [None]
  - FALL [None]
  - HAEMOGLOBIN DECREASED [None]
  - MELAENA [None]
  - SOMNOLENCE [None]
  - SUBDURAL HAEMATOMA [None]
